FAERS Safety Report 8619159-5 (Version None)
Quarter: 2012Q3

REPORT INFORMATION
  Report Type: 
  Country: None (occurrence: None)
  Receive Date: 20120824
  Receipt Date: 20120816
  Transmission Date: 20120928
  Serious: Yes (Other)
  Sender: FDA-Public Use
  Company Number: US-DX529-2012DX000183

PATIENT
  Age: 35 Year
  Sex: Female

DRUGS (3)
  1. KALBITOR [Suspect]
     Route: 058
     Dates: start: 20120701, end: 20120701
  2. KALBITOR [Suspect]
     Indication: HEREDITARY ANGIOEDEMA
     Route: 058
     Dates: start: 20120701, end: 20120701
  3. FIRAZYR [Concomitant]
     Indication: HEREDITARY ANGIOEDEMA

REACTIONS (4)
  - INJECTION SITE PRURITUS [None]
  - INJECTION SITE SWELLING [None]
  - INJECTION SITE ERYTHEMA [None]
  - HYPERSENSITIVITY [None]
